FAERS Safety Report 4315988-7 (Version None)
Quarter: 2004Q1

REPORT INFORMATION
  Report Type: 
  Country: None (occurrence: None)
  Receive Date: 20040310
  Receipt Date: 20040224
  Transmission Date: 20041129
  Serious: Yes (Hospitalization)
  Sender: FDA-Public Use
  Company Number: 04P-056-0251660-00

PATIENT
  Age: 69 Year
  Sex: Male

DRUGS (5)
  1. AKINETON [Suspect]
     Indication: MEDICATION ERROR
     Dosage: 1 DOSAGE FORMS, 1 IN 1 D, PER ORAL
     Route: 048
     Dates: start: 20040210, end: 20040210
  2. HALOPERIDOL [Suspect]
     Indication: MEDICATION ERROR
     Dosage: 10 MG, ONCE, PER ORAL
     Route: 048
     Dates: start: 20040210, end: 20040210
  3. CLONAZEPAM [Suspect]
     Indication: MEDICATION ERROR
     Dosage: 3 MG, ONCE, PER ORAL
     Route: 048
     Dates: start: 20040210, end: 20040210
  4. LEVOMEPROMAZINE [Suspect]
     Indication: MEDICATION ERROR
     Dosage: 150 MG, ONCE, PER ORAL
     Route: 048
     Dates: start: 20040210, end: 20040210
  5. MEPROBAMATE [Concomitant]

REACTIONS (3)
  - SINUS TACHYCARDIA [None]
  - SOMNOLENCE [None]
  - VOMITING [None]
